FAERS Safety Report 11667812 (Version 1)
Quarter: 2015Q4

REPORT INFORMATION
  Report Type: Spontaneous
  Country: JP (occurrence: JP)
  Receive Date: 20151027
  Receipt Date: 20151027
  Transmission Date: 20160304
  Serious: Yes (Other)
  Sender: FDA-Public Use
  Company Number: JP-ASTRAZENECA-2015SF03176

PATIENT
  Sex: Female

DRUGS (4)
  1. ADALAT [Suspect]
     Active Substance: NIFEDIPINE
     Indication: HYPERTENSION
     Dosage: NON AZ
     Route: 048
  2. ADALAT [Suspect]
     Active Substance: NIFEDIPINE
     Indication: HYPERTENSION
     Route: 048
  3. CRESTOR [Suspect]
     Active Substance: ROSUVASTATIN CALCIUM
     Indication: DYSLIPIDAEMIA
     Route: 048
  4. ATELEC [Suspect]
     Active Substance: CILNIDIPINE
     Indication: HYPERTENSION
     Route: 048

REACTIONS (2)
  - Cerebral ischaemia [Unknown]
  - Somnolence [Unknown]

NARRATIVE: CASE EVENT DATE: 20151015
